FAERS Safety Report 6012383-X (Version None)
Quarter: 2008Q4

REPORT INFORMATION
  Report Type: 
  Country: None (occurrence: None)
  Receive Date: 20081218
  Receipt Date: 20081104
  Transmission Date: 20090506
  Serious: No
  Sender: FDA-Public Use
  Company Number: US-ASTRAZENECA-2008UW20598

PATIENT
  Age: 14413 Day
  Sex: Female
  Weight: 63.5 kg

DRUGS (5)
  1. SYMBICORT [Suspect]
     Indication: ASTHMA
     Dosage: 160/4.5 MCG
     Route: 055
     Dates: start: 20080916, end: 20081104
  2. XOPENEX [Concomitant]
     Indication: ASTHMA
     Dosage: 2 PRN Q6HR
     Dates: start: 20080721
  3. PREDNISONE TAB [Concomitant]
     Indication: ASTHMA
     Dates: start: 20080721
  4. SINGULAIR [Concomitant]
     Indication: ASTHMA
     Dates: start: 20080721
  5. PULMICORT-100 [Concomitant]
     Indication: ASTHMA
     Dosage: 2 PUFFS QID
     Route: 055
     Dates: start: 20081007

REACTIONS (2)
  - CHEST PAIN [None]
  - HEART RATE INCREASED [None]
